FAERS Safety Report 11130392 (Version 1)
Quarter: 2015Q2

REPORT INFORMATION
  Report Type: Spontaneous
  Country: US (occurrence: US)
  Receive Date: 20150522
  Receipt Date: 20150522
  Transmission Date: 20150821
  Serious: Yes (Hospitalization, Other)
  Sender: FDA-Public Use
  Company Number: US-AMGEN-USASP2015024564

PATIENT
  Age: 53 Year
  Sex: Female

DRUGS (1)
  1. PROLIA [Suspect]
     Active Substance: DENOSUMAB
     Indication: PRODUCT USED FOR UNKNOWN INDICATION
     Dosage: UNK
     Route: 065

REACTIONS (11)
  - Dizziness [Unknown]
  - Apparent death [Unknown]
  - Anaphylactic shock [Unknown]
  - Crying [Unknown]
  - Dyspnoea [Not Recovered/Not Resolved]
  - Joint stiffness [Unknown]
  - Arthralgia [Unknown]
  - Memory impairment [Not Recovered/Not Resolved]
  - Loss of consciousness [Unknown]
  - Accidental exposure to product [Unknown]
  - Urticaria [Unknown]

NARRATIVE: CASE EVENT DATE: 20150329
